FAERS Safety Report 4295071-X (Version None)
Quarter: 2004Q1

REPORT INFORMATION
  Report Type: 
  Country: None (occurrence: None)
  Receive Date: 20040212
  Receipt Date: 20040202
  Transmission Date: 20041129
  Serious: Yes (Other)
  Sender: FDA-Public Use
  Company Number: US-JNJFOC-20031103610

PATIENT
  Age: 90 Year
  Sex: Male
  Weight: 84.8226 kg

DRUGS (10)
  1. LEUSTATIN [Suspect]
     Indication: HAIRY CELL LEUKAEMIA
     Dosage: 130 MG, 1 IN 1 TOTAL, INTRAVENOUS
     Route: 042
     Dates: start: 20031111, end: 20031111
  2. FERROUS SULFATE (TABLETS) FERROUS SULFATE [Concomitant]
  3. COUMADIN (TABLETS) WARFARIN SODIUM [Concomitant]
  4. NITROGLYCERIN (GLUCERYL TRINITRATE) [Concomitant]
  5. ATENOLOL [Concomitant]
  6. AMARYL (GLIMEPIRIDE) TABLETS [Concomitant]
  7. ALTACE (RAMPIRIL) CAPSULES [Concomitant]
  8. FENOFIBRATE [Concomitant]
  9. SYNTHROID (LEVOTHYROXINE SODIUM) TABLETS [Concomitant]
  10. ASPIRIN [Concomitant]

REACTIONS (3)
  - NAUSEA [None]
  - NEUTROPHIL COUNT DECREASED [None]
  - VOMITING [None]
